FAERS Safety Report 23354584 (Version 1)
Quarter: 2024Q1

REPORT INFORMATION
  Report Type: Report from Study
  Country: US (occurrence: US)
  Receive Date: 20240101
  Receipt Date: 20240101
  Transmission Date: 20240410
  Serious: Yes (Other)
  Sender: FDA-Public Use
  Company Number: US-002147023-NVSC2023US274506

PATIENT
  Sex: Male

DRUGS (1)
  1. MAYZENT [Suspect]
     Active Substance: SIPONIMOD
     Indication: Product used for unknown indication
     Dosage: 1 MG
     Route: 048

REACTIONS (8)
  - Skin cancer [Unknown]
  - Speech disorder [Unknown]
  - Memory impairment [Unknown]
  - Dysphagia [Unknown]
  - Impaired healing [Unknown]
  - Visual impairment [Unknown]
  - White blood cell count decreased [Unknown]
  - Hypertension [Unknown]
